FAERS Safety Report 19001848 (Version 1)
Quarter: 2021Q1

REPORT INFORMATION
  Report Type: Spontaneous
  Country: AU (occurrence: AU)
  Receive Date: 20210312
  Receipt Date: 20210312
  Transmission Date: 20210420
  Serious: Yes (Hospitalization)
  Sender: FDA-Public Use
  Company Number: AU-ELI_LILLY_AND_COMPANY-AU202103000049

PATIENT
  Age: 48 Year
  Sex: Female

DRUGS (3)
  1. ZYPREXA RELPREVV [Suspect]
     Active Substance: OLANZAPINE PAMOATE
     Indication: SCHIZOPHRENIA
     Dosage: 405 MG, OTHER (EVERY FOUR WEEKS)
     Route: 030
     Dates: start: 2016
  2. ZYPREXA RELPREVV [Suspect]
     Active Substance: OLANZAPINE PAMOATE
     Indication: SCHIZOPHRENIA
     Dosage: 405 MG, OTHER (EVERY FOUR WEEKS)
     Route: 030
     Dates: start: 2016
  3. ZYPREXA RELPREVV [Suspect]
     Active Substance: OLANZAPINE PAMOATE
     Indication: SCHIZOPHRENIA
     Dosage: 405 MG, OTHER (EVERY FOUR WEEKS)
     Route: 030
     Dates: start: 2016

REACTIONS (4)
  - Post procedural complication [Recovered/Resolved]
  - Unresponsive to stimuli [Recovered/Resolved]
  - Coma scale abnormal [Recovered/Resolved]
  - Dysarthria [Recovered/Resolved]

NARRATIVE: CASE EVENT DATE: 20200924
